FAERS Safety Report 7059635-2 (Version None)
Quarter: 2010Q4

REPORT INFORMATION
  Report Type: 
  Country: None (occurrence: None)
  Receive Date: 20101025
  Receipt Date: 20101012
  Transmission Date: 20110411
  Serious: Yes (Other)
  Sender: FDA-Public Use
  Company Number: GR-ELI_LILLY_AND_COMPANY-GR201010002695

PATIENT
  Age: 61 Year
  Sex: Female

DRUGS (5)
  1. LADOSE [Suspect]
     Indication: DEPRESSION
     Dosage: 30 MG, DAILY (1/D)
     Route: 048
     Dates: start: 20080101
  2. NOZINAN [Concomitant]
     Indication: PSYCHOTIC DISORDER
     Route: 048
     Dates: start: 20090101
  3. LEPONEX [Concomitant]
     Indication: PSYCHOTIC DISORDER
     Dosage: 200 MG, DAILY (1/D)
     Route: 048
     Dates: start: 20090101
  4. STEDON [Concomitant]
     Indication: INSOMNIA
     Route: 048
  5. BETA BLOCKING AGENTS [Concomitant]
     Indication: HYPERTENSION
     Dates: start: 20080101

REACTIONS (1)
  - ALOPECIA [None]
